FAERS Safety Report 10045916 (Version 1)
Quarter: 2014Q1

REPORT INFORMATION
  Report Type: Spontaneous
  Country: US (occurrence: US)
  Receive Date: 20140329
  Receipt Date: 20140329
  Transmission Date: 20141002
  Serious: No
  Sender: FDA-Public Use
  Company Number: US-009507513-1403USA012982

PATIENT
  Sex: Male

DRUGS (5)
  1. ZOCOR [Suspect]
     Indication: BLOOD CHOLESTEROL INCREASED
     Dosage: 30 MG, QD
     Route: 048
     Dates: start: 201312
  2. ASPIRIN [Concomitant]
  3. VITAMINS (UNSPECIFIED) [Concomitant]
  4. EFFIENT [Concomitant]
  5. UBIDECARENONE [Concomitant]

REACTIONS (1)
  - Abdominal pain upper [Not Recovered/Not Resolved]
